APPROVED DRUG PRODUCT: PSORCON
Active Ingredient: DIFLORASONE DIACETATE
Strength: 0.05% **Federal Register determination that product was not discontinued or withdrawn for safety or effectiveness reasons**
Dosage Form/Route: CREAM;TOPICAL
Application: N020205 | Product #001
Applicant: TARO PHARMACEUTICALS NORTH AMERICA INC
Approved: Nov 20, 1992 | RLD: Yes | RS: No | Type: DISCN